FAERS Safety Report 8736953 (Version 2)
Quarter: 2013Q4

REPORT INFORMATION
  Report Type: Spontaneous
  Country: US (occurrence: US)
  Receive Date: 20120822
  Receipt Date: 20131213
  Transmission Date: 20140711
  Serious: Yes (Life-Threatening, Hospitalization, Other)
  Sender: FDA-Public Use
  Company Number: US-ASTRAZENECA-2011SE59295

PATIENT
  Age: 29 Year
  Sex: Female
  Weight: 108.9 kg

DRUGS (5)
  1. SYMBICORT PMDI [Suspect]
     Indication: ASTHMA
     Dosage: 160/4.5 MCG, TWO PUFFS BID
     Route: 055
     Dates: end: 2013
  2. SYMBICORT PMDI [Suspect]
     Indication: CHRONIC OBSTRUCTIVE PULMONARY DISEASE
     Dosage: 160/4.5 MCG, TWO PUFFS BID
     Route: 055
     Dates: end: 2013
  3. METOPROLOL UNKNOWN [Concomitant]
     Indication: ARRHYTHMIA
     Dates: start: 201208
  4. COLCHICINE [Concomitant]
     Indication: CARDIOMEGALY
     Dates: start: 201208
  5. METACYCLINE [Concomitant]
     Route: 048
     Dates: start: 201211

REACTIONS (5)
  - Ventricular fibrillation [Recovered/Resolved]
  - Pericardial effusion [Unknown]
  - Pericarditis [Unknown]
  - Nasopharyngitis [Unknown]
  - Drug dose omission [Not Recovered/Not Resolved]
